FAERS Safety Report 18356821 (Version 1)
Quarter: 2020Q4

REPORT INFORMATION
  Report Type: Spontaneous
  Country: US (occurrence: US)
  Receive Date: 20201007
  Receipt Date: 20201007
  Transmission Date: 20210114
  Serious: Yes (Other)
  Sender: FDA-Public Use
  Company Number: US-PFIZER INC-2020383966

PATIENT
  Age: 51 Year
  Sex: Female

DRUGS (1)
  1. FILGRASTIM [Suspect]
     Active Substance: FILGRASTIM
     Indication: NEUTROPENIA
     Dosage: UNK

REACTIONS (5)
  - Pneumocystis jirovecii infection [Unknown]
  - Respiratory failure [Unknown]
  - Immune reconstitution inflammatory syndrome [Unknown]
  - Alveolitis [Unknown]
  - Acute respiratory distress syndrome [Unknown]
